FAERS Safety Report 18816336 (Version 1)
Quarter: 2021Q1

REPORT INFORMATION
  Report Type: Spontaneous
  Country: US (occurrence: US)
  Receive Date: 20210201
  Receipt Date: 20210201
  Transmission Date: 20210419
  Serious: Yes (Disabling)
  Sender: FDA-Public Use
  Company Number: None

PATIENT
  Age: 28 Year
  Sex: Male
  Weight: 60.75 kg

DRUGS (1)
  1. FINASTERIDE. [Suspect]
     Active Substance: FINASTERIDE
     Indication: PROPHYLAXIS
     Dosage: ?          QUANTITY:1 TABLET(S);?
     Route: 048
     Dates: start: 20190928, end: 20200116

REACTIONS (30)
  - Testicular pain [None]
  - Gynaecomastia [None]
  - Abdominal distension [None]
  - Morose [None]
  - Blood testosterone decreased [None]
  - Dihydrotestosterone increased [None]
  - Seborrhoea [None]
  - Groin pain [None]
  - Premature ageing [None]
  - Blood follicle stimulating hormone decreased [None]
  - Alopecia [None]
  - Dyspepsia [None]
  - Suicidal ideation [None]
  - Dry skin [None]
  - Oestradiol abnormal [None]
  - Cortisol increased [None]
  - Penile pain [None]
  - Skin wrinkling [None]
  - Impaired quality of life [None]
  - Pruritus [None]
  - Erectile dysfunction [None]
  - Spontaneous penile erection [None]
  - Depression [None]
  - Depressed level of consciousness [None]
  - Cognitive disorder [None]
  - Visual impairment [None]
  - Libido decreased [None]
  - Anxiety [None]
  - Tinnitus [None]
  - Blood luteinising hormone decreased [None]

NARRATIVE: CASE EVENT DATE: 20200117
